FAERS Safety Report 7731436-9 (Version None)
Quarter: 2011Q3

REPORT INFORMATION
  Report Type: 
  Country: None (occurrence: None)
  Receive Date: 20110906
  Receipt Date: 20110824
  Transmission Date: 20111222
  Serious: Yes (Hospitalization)
  Sender: FDA-Public Use
  Company Number: US-BAYER-2011-076665

PATIENT
  Age: 75 Year
  Sex: Male

DRUGS (2)
  1. CIPROFLOXACIN [Suspect]
     Dosage: UNK
     Route: 048
  2. METRONIDAZOLE [Suspect]
     Indication: DIVERTICULITIS
     Dosage: UNK
     Route: 048

REACTIONS (2)
  - MESANGIOPROLIFERATIVE GLOMERULONEPHRITIS [None]
  - HENOCH-SCHONLEIN PURPURA [None]
